FAERS Safety Report 25991152 (Version 3)
Quarter: 2025Q4

REPORT INFORMATION
  Report Type: Spontaneous
  Country: PS (occurrence: PS)
  Receive Date: 20251103
  Receipt Date: 20251111
  Transmission Date: 20260117
  Serious: Yes (Hospitalization, Other)
  Sender: PFIZER
  Company Number: PS-PFIZER INC-PV202500128438

PATIENT
  Age: 59 Year
  Sex: Male

DRUGS (12)
  1. IRINOTECAN HYDROCHLORIDE [Interacting]
     Active Substance: IRINOTECAN HYDROCHLORIDE
     Indication: Adenocarcinoma of colon
     Dosage: UNK UNK, CYCLIC (THIRD CYCLE)
     Dates: end: 20250415
  2. IRINOTECAN HYDROCHLORIDE [Interacting]
     Active Substance: IRINOTECAN HYDROCHLORIDE
     Indication: Metastases to bladder
  3. IRINOTECAN HYDROCHLORIDE [Interacting]
     Active Substance: IRINOTECAN HYDROCHLORIDE
     Indication: Metastases to liver
  4. LEUCOVORIN [Interacting]
     Active Substance: LEUCOVORIN\LEUCOVORIN CALCIUM
     Indication: Adenocarcinoma of colon
     Dosage: UNK, CYCLIC (THIRD CYCLE)
     Dates: end: 20250415
  5. LEUCOVORIN [Interacting]
     Active Substance: LEUCOVORIN\LEUCOVORIN CALCIUM
     Indication: Metastases to bladder
  6. LEUCOVORIN [Interacting]
     Active Substance: LEUCOVORIN\LEUCOVORIN CALCIUM
     Indication: Metastases to liver
  7. FLUOROURACIL [Interacting]
     Active Substance: FLUOROURACIL
     Indication: Adenocarcinoma of colon
     Dosage: UNK, CYCLIC (THIRD CYCLE)
     Dates: end: 20250415
  8. FLUOROURACIL [Interacting]
     Active Substance: FLUOROURACIL
     Indication: Metastases to bladder
  9. FLUOROURACIL [Interacting]
     Active Substance: FLUOROURACIL
     Indication: Metastases to liver
  10. CETUXIMAB [Interacting]
     Active Substance: CETUXIMAB
     Indication: Adenocarcinoma of colon
     Dosage: UNK, CYCLIC (THIRD CYCLE)
     Dates: end: 20250415
  11. CETUXIMAB [Interacting]
     Active Substance: CETUXIMAB
     Indication: Metastases to bladder
  12. CETUXIMAB [Interacting]
     Active Substance: CETUXIMAB
     Indication: Metastases to liver

REACTIONS (11)
  - Artery dissection [Recovered/Resolved]
  - Coeliac artery aneurysm [Recovered/Resolved]
  - Potentiating drug interaction [Unknown]
  - C-reactive protein increased [Recovered/Resolved]
  - International normalised ratio increased [Recovered/Resolved]
  - Gamma-glutamyltransferase increased [Recovered/Resolved]
  - Acute kidney injury [Recovered/Resolved]
  - Hyponatraemia [Unknown]
  - Thrombocytopenia [Unknown]
  - Leukopenia [Recovered/Resolved]
  - Blood alkaline phosphatase increased [Recovered/Resolved]

NARRATIVE: CASE EVENT DATE: 20250401
